FAERS Safety Report 9781536 (Version 1)
Quarter: 2013Q4

REPORT INFORMATION
  Report Type: Spontaneous
  Country: US (occurrence: US)
  Receive Date: 20131224
  Receipt Date: 20131224
  Transmission Date: 20140711
  Serious: Yes (Other)
  Sender: FDA-Public Use
  Company Number: US-GILEAD-2013-0090580

PATIENT
  Sex: Female

DRUGS (1)
  1. VIREAD [Suspect]
     Indication: HEPATITIS B
     Route: 065

REACTIONS (1)
  - Crohn^s disease [Unknown]
